FAERS Safety Report 21962562 (Version 1)
Quarter: 2023Q1

REPORT INFORMATION
  Report Type: Spontaneous
  Country: IT (occurrence: IT)
  Receive Date: 20230207
  Receipt Date: 20230207
  Transmission Date: 20230417
  Serious: Yes (Other)
  Sender: FDA-Public Use
  Company Number: IT-SA-2023SA035881

PATIENT
  Age: 53 Year
  Sex: Male

DRUGS (5)
  1. RASBURICASE [Suspect]
     Active Substance: RASBURICASE
     Indication: Prophylaxis
     Dosage: 15 MG/ 10.5 MG, FIRST DOSE
     Dates: start: 201807
  2. RASBURICASE [Suspect]
     Active Substance: RASBURICASE
     Dosage: 15 MG, SECOND DOSE
     Dates: start: 2018
  3. VENETOCLAX [Suspect]
     Active Substance: VENETOCLAX
     Indication: Chronic lymphocytic leukaemia stage 2
     Dosage: 20 MG
     Dates: start: 201807
  4. VENETOCLAX [Suspect]
     Active Substance: VENETOCLAX
     Dosage: 50 MG ESCALATED
     Dates: start: 2018
  5. VENETOCLAX [Suspect]
     Active Substance: VENETOCLAX
     Dosage: 400 MG, QW
     Dates: start: 2018

REACTIONS (4)
  - Hyperbilirubinaemia [Recovered/Resolved]
  - Chromaturia [Recovered/Resolved]
  - Haemolysis [Recovering/Resolving]
  - Reticulocytosis [Recovering/Resolving]

NARRATIVE: CASE EVENT DATE: 20180101
